FAERS Safety Report 8794201 (Version 2)
Quarter: 2012Q4

REPORT INFORMATION
  Report Type: 
  Country: KR (occurrence: KR)
  Receive Date: 20120917
  Receipt Date: 20120919
  Transmission Date: 20130627
  Serious: Yes (Hospitalization, Other)
  Sender: FDA-Public Use
  Company Number: KR-ELI_LILLY_AND_COMPANY-KR201209001733

PATIENT
  Sex: Female

DRUGS (1)
  1. FORSTEO [Suspect]
     Indication: OSTEOPOROSIS
     Dosage: 20 ug, qd
     Route: 058
     Dates: start: 20120816, end: 20120901

REACTIONS (6)
  - Depressed level of consciousness [Recovering/Resolving]
  - Bone disorder [Unknown]
  - Back pain [Unknown]
  - Vomiting [Recovering/Resolving]
  - Asthenia [Recovering/Resolving]
  - Blood sodium decreased [Unknown]
